FAERS Safety Report 10172820 (Version 1)
Quarter: 2014Q2

REPORT INFORMATION
  Report Type: Spontaneous
  Country: US (occurrence: US)
  Receive Date: 20140515
  Receipt Date: 20140515
  Transmission Date: 20141212
  Serious: Yes (Hospitalization)
  Sender: FDA-Public Use
  Company Number: US-GLAXOSMITHKLINE-A1072453A

PATIENT
  Sex: Female

DRUGS (12)
  1. ADVAIR [Suspect]
     Indication: CHRONIC OBSTRUCTIVE PULMONARY DISEASE
     Dosage: 1PUFF TWICE PER DAY
     Route: 055
     Dates: end: 20140506
  2. DALIRESP [Suspect]
     Indication: PRODUCT USED FOR UNKNOWN INDICATION
  3. LEVAQUIN [Suspect]
     Indication: PRODUCT USED FOR UNKNOWN INDICATION
  4. PREDNISONE [Suspect]
     Indication: PRODUCT USED FOR UNKNOWN INDICATION
  5. PREDNISONE [Concomitant]
  6. SPIRIVA [Concomitant]
  7. METOPROLOL [Concomitant]
  8. LOSARTAN [Concomitant]
  9. FISH OIL [Concomitant]
  10. OTHER MEDICATIONS [Concomitant]
  11. PROBIOTIC [Concomitant]
  12. NEBULIZER [Concomitant]

REACTIONS (4)
  - Renal impairment [Recovering/Resolving]
  - Fatigue [Recovering/Resolving]
  - Cushingoid [Recovering/Resolving]
  - Device alarm issue [Recovering/Resolving]
